FAERS Safety Report 6252830-1 (Version None)
Quarter: 2009Q3

REPORT INFORMATION
  Report Type: 
  Country: None (occurrence: None)
  Receive Date: 20090701
  Receipt Date: 20090622
  Transmission Date: 20100115
  Serious: Yes (Other)
  Sender: FDA-Public Use
  Company Number: US-ELI_LILLY_AND_COMPANY-US200906000481

PATIENT
  Sex: Female
  Weight: 117.91 kg

DRUGS (4)
  1. BYETTA [Suspect]
     Indication: INSULIN-REQUIRING TYPE 2 DIABETES MELLITUS
     Dosage: 5 UG, UNK
     Route: 058
     Dates: start: 20090530, end: 20090602
  2. BYETTA [Suspect]
     Dosage: 5 UG, UNK
     Route: 058
     Dates: start: 20090620
  3. ACTOS [Concomitant]
     Dosage: 15 MG, UNK
  4. HUMALOG [Concomitant]
     Indication: TYPE 2 DIABETES MELLITUS
     Dosage: UNK, DAILY (1/D)
     Route: 058

REACTIONS (9)
  - BLOOD GLUCOSE DECREASED [None]
  - DECREASED APPETITE [None]
  - DIARRHOEA [None]
  - HYPOGLYCAEMIC UNCONSCIOUSNESS [None]
  - NAUSEA [None]
  - OFF LABEL USE [None]
  - PALPITATIONS [None]
  - VOMITING [None]
  - WEIGHT DECREASED [None]
